FAERS Safety Report 23485358 (Version 1)
Quarter: 2024Q1

REPORT INFORMATION
  Report Type: Spontaneous
  Country: US (occurrence: US)
  Receive Date: 20240206
  Receipt Date: 20240206
  Transmission Date: 20240409
  Serious: No
  Sender: FDA-Public Use
  Company Number: US-SA-SAC20240127000175

PATIENT
  Age: 91 Year
  Sex: Male

DRUGS (1)
  1. DUPIXENT [Suspect]
     Active Substance: DUPILUMAB
     Indication: Dermatitis atopic
     Dosage: 300 MG, QOW
     Route: 058
     Dates: start: 202308

REACTIONS (6)
  - Sacral pain [Recovering/Resolving]
  - Pain [Recovered/Resolved]
  - Retinal disorder [Unknown]
  - Myalgia [Unknown]
  - Oedema [Unknown]
  - Therapeutic product effect incomplete [Unknown]
